FAERS Safety Report 5019432-6 (Version None)
Quarter: 2006Q2

REPORT INFORMATION
  Report Type: 
  Country: None (occurrence: None)
  Receive Date: 20060531
  Receipt Date: 20060517
  Transmission Date: 20061013
  Serious: Yes (Hospitalization)
  Sender: FDA-Public Use
  Company Number: 02100-JPN-06-0230

PATIENT
  Sex: 0

DRUGS (1)
  1. CILOSTAZOL [Suspect]
     Dosage: ORAL
     Route: 048

REACTIONS (1)
  - EXTRASYSTOLES [None]
